FAERS Safety Report 11685667 (Version 1)
Quarter: 2015Q4

REPORT INFORMATION
  Report Type: Spontaneous
  Country: US (occurrence: None)
  Receive Date: 20151029
  Receipt Date: 20151029
  Transmission Date: 20160304
  Serious: Yes (Hospitalization)
  Sender: FDA-Public Use
  Company Number: None

PATIENT
  Age: 80 Year
  Sex: Female
  Weight: 39.9 kg

DRUGS (7)
  1. NYSTATIN. [Concomitant]
     Active Substance: NYSTATIN
  2. VISION FORMULA/LUTEIN [Concomitant]
  3. ALENDRONATE [Concomitant]
     Active Substance: ALENDRONATE SODIUM
  4. DULERA [Concomitant]
     Active Substance: FORMOTEROL FUMARATE DIHYDRATE\MOMETASONE FUROATE
  5. PROAIR HFA [Concomitant]
     Active Substance: ALBUTEROL SULFATE
  6. COLACE [Concomitant]
     Active Substance: DOCUSATE SODIUM
  7. PAZOPANIB [Suspect]
     Active Substance: PAZOPANIB
     Indication: NON-SMALL CELL LUNG CANCER
     Route: 048
     Dates: start: 20151001, end: 20151015

REACTIONS (6)
  - Bone marrow failure [None]
  - Aspartate aminotransferase increased [None]
  - Syncope [None]
  - Blood alkaline phosphatase increased [None]
  - Alanine aminotransferase increased [None]
  - Hyponatraemia [None]

NARRATIVE: CASE EVENT DATE: 20151015
